FAERS Safety Report 14506586 (Version 1)
Quarter: 2018Q1

REPORT INFORMATION
  Report Type: Spontaneous
  Country: US (occurrence: US)
  Receive Date: 20180208
  Receipt Date: 20180208
  Transmission Date: 20180509
  Serious: No
  Sender: FDA-Public Use
  Company Number: US-TARO-2017TAR00056

PATIENT
  Age: 62 Year
  Sex: Female
  Weight: 78.5 kg

DRUGS (5)
  1. UNSPECIFIED OTHER PRODUCTS [Concomitant]
  2. NYSTATIN AND TRIAMCINOLONE ACETONIDE [Suspect]
     Active Substance: NYSTATIN\TRIAMCINOLONE ACETONIDE
     Dosage: 1 DOSAGE UNITS, ONCE
     Route: 061
     Dates: start: 20170121, end: 20170121
  3. PREDNISONE. [Concomitant]
     Active Substance: PREDNISONE
  4. UNSPECIFIED BLOOD PRESSURE MEDICATION [Concomitant]
     Active Substance: UNSPECIFIED INGREDIENT
  5. NYSTATIN AND TRIAMCINOLONE ACETONIDE [Suspect]
     Active Substance: NYSTATIN\TRIAMCINOLONE ACETONIDE
     Indication: FUNGAL INFECTION
     Dosage: 1 DOSAGE UNITS, TWICE
     Route: 061
     Dates: start: 20170120, end: 20170120

REACTIONS (3)
  - Application site pruritus [Recovered/Resolved]
  - Application site vesicles [Recovering/Resolving]
  - Application site rash [Recovering/Resolving]

NARRATIVE: CASE EVENT DATE: 20170121
